FAERS Safety Report 25119881 (Version 1)
Quarter: 2025Q1

REPORT INFORMATION
  Report Type: Report from Study
  Country: CA (occurrence: CA)
  Receive Date: 20250325
  Receipt Date: 20250325
  Transmission Date: 20250408
  Serious: Yes (Other)
  Sender: TAKEDA
  Company Number: CA-TAKEDA-2025TUS029923

PATIENT
  Sex: Male

DRUGS (7)
  1. VEDOLIZUMAB [Suspect]
     Active Substance: VEDOLIZUMAB
     Indication: Crohn^s disease
  2. LASIX [Concomitant]
     Active Substance: FUROSEMIDE
  3. ANUSOL HC [Concomitant]
     Active Substance: HYDROCORTISONE
  4. ELIQUIS [Concomitant]
     Active Substance: APIXABAN
  5. ENTRESTO [Concomitant]
     Active Substance: SACUBITRIL\VALSARTAN
  6. SPIRONOLACTONE [Concomitant]
     Active Substance: SPIRONOLACTONE
  7. DIGOXIN [Concomitant]
     Active Substance: DIGOXIN

REACTIONS (1)
  - Cataract [Unknown]
